FAERS Safety Report 5397678-5 (Version None)
Quarter: 2007Q3

REPORT INFORMATION
  Report Type: 
  Country: None (occurrence: None)
  Receive Date: 20070726
  Receipt Date: 20070723
  Transmission Date: 20080115
  Serious: Yes (Hospitalization)
  Sender: FDA-Public Use
  Company Number: US-BRACCO-BDI-009795

PATIENT
  Sex: Female
  Weight: 95 kg

DRUGS (3)
  1. ISOVUE-128 [Suspect]
     Route: 042
     Dates: start: 20070626, end: 20070626
  2. LOTREL [Concomitant]
     Route: 050
  3. PROTONIX                           /01263201/ [Concomitant]
     Route: 050

REACTIONS (7)
  - ANGIOEDEMA [None]
  - BLISTER [None]
  - CELLULITIS [None]
  - EXTRAVASATION [None]
  - OEDEMA [None]
  - PARAESTHESIA [None]
  - TENDONITIS [None]
